FAERS Safety Report 10266610 (Version 1)
Quarter: 2014Q2

REPORT INFORMATION
  Report Type: Report from Study
  Country: IN (occurrence: IN)
  Receive Date: 20140629
  Receipt Date: 20140629
  Transmission Date: 20141212
  Serious: Yes (Death, Hospitalization)
  Sender: FDA-Public Use
  Company Number: PHHY2014IN079664

PATIENT
  Age: 79 Year
  Sex: Female

DRUGS (1)
  1. ACLASTA [Suspect]
     Indication: OSTEOPOROSIS
     Dosage: 5 MG/100 ML PER YEAR
     Route: 042
     Dates: start: 20130618

REACTIONS (6)
  - Renal failure [Fatal]
  - Jaundice [Fatal]
  - Overdose [Fatal]
  - Coma [Unknown]
  - Abdominal distension [Unknown]
  - Aphagia [Unknown]
